FAERS Safety Report 17699875 (Version 6)
Quarter: 2020Q2

REPORT INFORMATION
  Report Type: Report from Study
  Country: MX (occurrence: MX)
  Receive Date: 20200423
  Receipt Date: 20200603
  Transmission Date: 20200714
  Serious: Yes (Other)
  Sender: FDA-Public Use
  Company Number: NVSC2020MX086371

PATIENT
  Age: 68 Year
  Sex: Female
  Weight: 84 kg

DRUGS (1)
  1. GALVUS MET [Suspect]
     Active Substance: METFORMIN HYDROCHLORIDE\VILDAGLIPTIN
     Indication: DIABETES MELLITUS
     Dosage: 1 DF (50/500 MG), BID
     Route: 048
     Dates: start: 201511

REACTIONS (13)
  - Blood pressure increased [Unknown]
  - Stress [Recovered/Resolved]
  - Limb injury [Not Recovered/Not Resolved]
  - Diarrhoea [Recovered/Resolved]
  - Insomnia [Recovering/Resolving]
  - Restlessness [Recovering/Resolving]
  - Headache [Unknown]
  - Mood altered [Recovering/Resolving]
  - Weight increased [Unknown]
  - Tinnitus [Unknown]
  - Anxiety [Unknown]
  - Insomnia [Recovered/Resolved]
  - Skin discolouration [Not Recovered/Not Resolved]

NARRATIVE: CASE EVENT DATE: 20200322
